FAERS Safety Report 25242841 (Version 1)
Quarter: 2025Q2

REPORT INFORMATION
  Report Type: Spontaneous
  Country: DE (occurrence: DE)
  Receive Date: 20250427
  Receipt Date: 20250427
  Transmission Date: 20250716
  Serious: Yes (Other)
  Sender: UCB
  Company Number: DE-ABBVIE-6077337

PATIENT
  Age: 64 Year
  Sex: Male

DRUGS (5)
  1. ROTIGOTINE [Suspect]
     Active Substance: ROTIGOTINE
     Indication: Product used for unknown indication
  2. FOSLEVODOPA [Suspect]
     Active Substance: FOSLEVODOPA
     Indication: Parkinson^s disease
     Route: 058
     Dates: start: 20240109
  3. FOSLEVODOPA [Suspect]
     Active Substance: FOSLEVODOPA
     Route: 058
  4. FOSLEVODOPA [Suspect]
     Active Substance: FOSLEVODOPA
     Route: 058
     Dates: start: 202501
  5. BENSERAZIDE HYDROCHLORIDE\LEVODOPA [Concomitant]
     Active Substance: BENSERAZIDE HYDROCHLORIDE\LEVODOPA
     Indication: Product used for unknown indication

REACTIONS (7)
  - Parkinson^s disease [Not Recovered/Not Resolved]
  - Hallucination [Recovering/Resolving]
  - Psychomotor hyperactivity [Unknown]
  - Hyperkinesia [Unknown]
  - On and off phenomenon [Not Recovered/Not Resolved]
  - Drug ineffective [Unknown]
  - Device issue [Unknown]

NARRATIVE: CASE EVENT DATE: 20241201
